FAERS Safety Report 8923938 (Version 1)
Quarter: 2012Q4

REPORT INFORMATION
  Report Type: 
  Country: GB (occurrence: GB)
  Receive Date: 20121126
  Receipt Date: 20121126
  Transmission Date: 20130627
  Serious: Yes (Life-Threatening)
  Sender: FDA-Public Use
  Company Number: GB-PFIZER INC-2012294493

PATIENT
  Age: 19 Year
  Sex: Female
  Weight: 57.15 kg

DRUGS (1)
  1. CHAMPIX [Suspect]
     Indication: SMOKING CESSATION THERAPY
     Dosage: 1 mg, 2x/day
     Route: 048
     Dates: start: 20110401, end: 20110622

REACTIONS (5)
  - Depression suicidal [Recovered/Resolved]
  - Social avoidant behaviour [Recovered/Resolved]
  - Hostility [Recovered/Resolved]
  - Anger [Recovered/Resolved]
  - Depression [Recovered/Resolved]
